FAERS Safety Report 16897351 (Version 1)
Quarter: 2019Q4

REPORT INFORMATION
  Report Type: Report from Study
  Country: None (occurrence: US)
  Receive Date: 20191009
  Receipt Date: 20191009
  Transmission Date: 20200122
  Serious: Yes (Other)
  Sender: FDA-Public Use
  Company Number: US-ABBVIE-19K-163-2913542-00

PATIENT
  Sex: Female

DRUGS (1)
  1. HUMIRA [Suspect]
     Active Substance: ADALIMUMAB
     Indication: RHEUMATOID ARTHRITIS
     Route: 058
     Dates: start: 201906

REACTIONS (11)
  - Hypersensitivity [Unknown]
  - Procedural pain [Not Recovered/Not Resolved]
  - Rash [Recovered/Resolved]
  - Dry skin [Unknown]
  - Lacrimation increased [Unknown]
  - Dyspnoea exertional [Unknown]
  - Toothache [Unknown]
  - Gingival bleeding [Unknown]
  - Joint stiffness [Unknown]
  - Asthma [Unknown]
  - Joint swelling [Unknown]

NARRATIVE: CASE EVENT DATE: 2019
